FAERS Safety Report 6152341-8 (Version None)
Quarter: 2009Q2

REPORT INFORMATION
  Report Type: 
  Country: None (occurrence: None)
  Receive Date: 20090409
  Receipt Date: 20090209
  Transmission Date: 20091009
  Serious: Yes (Hospitalization)
  Sender: FDA-Public Use
  Company Number: 8040376

PATIENT
  Age: 29 Year
  Sex: Female
  Weight: 58.9 kg

DRUGS (13)
  1. KEPPRA [Suspect]
     Indication: CONVULSION
     Dosage: 2500 MG 2/D PO
     Route: 048
     Dates: start: 20080301
  2. KEPPRA [Suspect]
     Indication: CONVULSION
     Dosage: 3000 MG 2/D PO
     Route: 048
  3. KEPPRA [Suspect]
     Indication: CONVULSION
     Dosage: 2000 MG 2/D PO
     Route: 048
  4. KEPPRA [Suspect]
     Indication: CONVULSION
     Dosage: 1000 MG 2/D IV
     Route: 042
     Dates: start: 20080301, end: 20081101
  5. VITAMIN TAB [Concomitant]
  6. THYROID TAB [Concomitant]
  7. ZONEGRAN [Concomitant]
  8. TOPAMAX [Concomitant]
  9. LAMICTAL [Concomitant]
  10. TRILEPTAL [Concomitant]
  11. LORAZEPAM [Concomitant]
  12. VALIUM [Concomitant]
  13. DILANTIN [Concomitant]

REACTIONS (1)
  - CONVULSION [None]
